FAERS Safety Report 14183348 (Version 5)
Quarter: 2018Q1

REPORT INFORMATION
  Report Type: Report from Study
  Country: IL (occurrence: IL)
  Receive Date: 20171113
  Receipt Date: 20180130
  Transmission Date: 20180508
  Serious: Yes (Hospitalization, Other)
  Sender: FDA-Public Use
  Company Number: IL-JNJFOC-20171030355

PATIENT
  Sex: Female

DRUGS (1)
  1. SIMPONI [Suspect]
     Active Substance: GOLIMUMAB
     Indication: RHEUMATOID ARTHRITIS
     Route: 058
     Dates: start: 20160203

REACTIONS (8)
  - Gastrointestinal inflammation [Unknown]
  - Haemoglobin decreased [Unknown]
  - Injection site pain [Unknown]
  - Rheumatoid arthritis [Recovering/Resolving]
  - Intestinal stenosis [Unknown]
  - Blood potassium decreased [Not Recovered/Not Resolved]
  - Peritonitis [Not Recovered/Not Resolved]
  - Back pain [Unknown]

NARRATIVE: CASE EVENT DATE: 2017
